FAERS Safety Report 20844465 (Version 5)
Quarter: 2022Q3

REPORT INFORMATION
  Report Type: Report from Study
  Country: US (occurrence: US)
  Receive Date: 20220518
  Receipt Date: 20220930
  Transmission Date: 20221027
  Serious: Yes (Hospitalization)
  Sender: FDA-Public Use
  Company Number: US-BIOVITRUM-2022US06191

PATIENT
  Age: 11 Year
  Sex: Female

DRUGS (3)
  1. KINERET [Suspect]
     Active Substance: ANAKINRA
     Indication: Still^s disease
     Dates: start: 202102
  2. KINERET [Suspect]
     Active Substance: ANAKINRA
     Dates: start: 20210211
  3. ACTEMRA [Suspect]
     Active Substance: TOCILIZUMAB

REACTIONS (17)
  - Chest discomfort [Unknown]
  - Dyspnoea [Unknown]
  - Swelling [Unknown]
  - Swelling face [Unknown]
  - Eye swelling [Unknown]
  - Burning sensation [Unknown]
  - Pain [Unknown]
  - Peripheral swelling [Unknown]
  - Insomnia [Unknown]
  - Rash [Unknown]
  - Injection site urticaria [Unknown]
  - Urticaria [Unknown]
  - Drug hypersensitivity [Unknown]
  - Injection site erythema [Recovered/Resolved]
  - Injection site swelling [Recovered/Resolved]
  - Product dose omission issue [Unknown]
  - Off label use [Not Recovered/Not Resolved]

NARRATIVE: CASE EVENT DATE: 20210211
